FAERS Safety Report 12204774 (Version 1)
Quarter: 2016Q1

REPORT INFORMATION
  Report Type: Spontaneous
  Country: US (occurrence: None)
  Receive Date: 20160322
  Receipt Date: 20160322
  Transmission Date: 20160526
  Serious: Yes (Hospitalization)
  Sender: FDA-Public Use
  Company Number: None

PATIENT
  Age: 71 Year
  Sex: Male
  Weight: 70 kg

DRUGS (15)
  1. DONEPEZIL (ARICEPT) [Concomitant]
  2. SYNTHROID [Concomitant]
     Active Substance: LEVOTHYROXINE SODIUM
  3. ATORVASTATIN 80 MG [Suspect]
     Active Substance: ATORVASTATIN
     Route: 048
  4. LASIX [Concomitant]
     Active Substance: FUROSEMIDE
  5. POTASSIUM CHLORIDE (MICRO-K) [Concomitant]
  6. VITAMIN D (ERGOCALCIFEROL) [Concomitant]
     Active Substance: ERGOCALCIFEROL
  7. METOPROLOL (LOPRESSOR) [Concomitant]
  8. CALCIUM-VITAMIN D (OSCAL-500) [Concomitant]
  9. GEMFIBROZIL 600 MG [Suspect]
     Active Substance: GEMFIBROZIL
     Route: 048
  10. GEMFIBROZIL (LOPID) [Concomitant]
  11. LANTUS [Concomitant]
     Active Substance: INSULIN GLARGINE
  12. INSULIN LISPRO (HUMALOG) [Concomitant]
  13. LIPITOR [Concomitant]
     Active Substance: ATORVASTATIN CALCIUM
  14. PREDNISONE (DELTASONE) [Concomitant]
  15. COUMADIN [Concomitant]
     Active Substance: WARFARIN SODIUM

REACTIONS (3)
  - Fall [None]
  - Blood creatine phosphokinase increased [None]
  - Muscular weakness [None]

NARRATIVE: CASE EVENT DATE: 20160301
